FAERS Safety Report 23588535 (Version 2)
Quarter: 2024Q1

REPORT INFORMATION
  Report Type: Spontaneous
  Country: US (occurrence: KR)
  Receive Date: 20240302
  Receipt Date: 20240327
  Transmission Date: 20240410
  Serious: Yes (Other)
  Sender: FDA-Public Use
  Company Number: US-AMGEN-KORSP2024037255

PATIENT

DRUGS (1)
  1. PROLIA [Suspect]
     Active Substance: DENOSUMAB
     Indication: Osteoporosis
     Dosage: 60 MILLIGRAM (IN 1 ML OF SOLUTION)
     Route: 058

REACTIONS (19)
  - Hypertriglyceridaemia [Unknown]
  - Otitis externa [Unknown]
  - Periodontitis [Unknown]
  - Low density lipoprotein increased [Unknown]
  - Otitis media [Unknown]
  - Gastroenteritis [Unknown]
  - Nasopharyngitis [Unknown]
  - Infection [Unknown]
  - Blood calcium decreased [Unknown]
  - Blood triglycerides increased [Unknown]
  - Blood creatine phosphokinase increased [Unknown]
  - Hypermagnesaemia [Unknown]
  - Blood cholesterol increased [Unknown]
  - COVID-19 [Unknown]
  - Hordeolum [Unknown]
  - Blood bilirubin increased [Unknown]
  - Alanine aminotransferase increased [Unknown]
  - Aspartate aminotransferase increased [Unknown]
  - Arthralgia [Unknown]
